FAERS Safety Report 5088034-8 (Version None)
Quarter: 2006Q3

REPORT INFORMATION
  Report Type: 
  Country: None (occurrence: None)
  Receive Date: 20060822
  Receipt Date: 20060822
  Transmission Date: 20061208
  Serious: Yes (Death)
  Sender: FDA-Public Use
  Company Number: None

PATIENT
  Sex: Female
  Weight: 113 kg

DRUGS (21)
  1. GEMTUZUMAB [Suspect]
     Indication: ACUTE MYELOID LEUKAEMIA
     Dosage: 18 MG ONCE IV
     Route: 042
     Dates: start: 20060614, end: 20060614
  2. ACYCLOVIR [Concomitant]
  3. ALBUTEROL [Concomitant]
  4. ALLOPURINOL [Concomitant]
  5. CEFEPIME [Concomitant]
  6. DOCUSATE [Concomitant]
  7. HYDROCORTISONE IPRATROPIUM [Concomitant]
  8. METRONIDAZOLE [Concomitant]
  9. MONTELUKAST [Concomitant]
  10. OXYBUTYNIN [Concomitant]
  11. PANTOPRAZOLE SODIUM [Concomitant]
  12. PREDNISONE TAB [Concomitant]
  13. SENNA [Concomitant]
  14. VANCOMYCIN [Concomitant]
  15. ZOLPIDEM [Concomitant]
  16. ACETAMINOPHEN [Concomitant]
  17. INSULIN [Concomitant]
  18. LEVOPHED [Concomitant]
  19. MORPHINE [Concomitant]
  20. PHENYLEPHRINE [Concomitant]
  21. VASOPRESSIN [Concomitant]

REACTIONS (1)
  - BLOOD PRESSURE DECREASED [None]
